FAERS Safety Report 19949307 (Version 1)
Quarter: 2021Q4

REPORT INFORMATION
  Report Type: Spontaneous
  Country: US (occurrence: US)
  Receive Date: 20211012
  Receipt Date: 20211012
  Transmission Date: 20220303
  Serious: Yes (Hospitalization)
  Sender: FDA-Public Use
  Company Number: None

PATIENT
  Age: 70 Year
  Sex: Female
  Weight: 90.6 kg

DRUGS (14)
  1. DOMPERIDONE [Suspect]
     Active Substance: DOMPERIDONE
     Indication: Impaired gastric emptying
     Route: 048
     Dates: start: 20141117
  2. Albuterol 180 mcg [Concomitant]
  3. Avorvastatin 80 mg [Concomitant]
  4. Calcium Carbonate 1200 mg [Concomitant]
  5. FORTEO [Concomitant]
     Active Substance: TERIPARATIDE
  6. FAMOTIDINE [Concomitant]
     Active Substance: FAMOTIDINE
  7. HUMALOG [Concomitant]
     Active Substance: INSULIN LISPRO
  8. LISINOPRIL [Concomitant]
     Active Substance: LISINOPRIL
  9. PANTOPRAZOLE SODIUM [Concomitant]
     Active Substance: PANTOPRAZOLE SODIUM
  10. Solifenacin 5 mg [Concomitant]
  11. Turmeric curcumin 1000mg [Concomitant]
  12. WARFARIN [Concomitant]
     Active Substance: WARFARIN
  13. Vitamin D3 50000 units [Concomitant]
  14. PROAIR HFA [Concomitant]
     Active Substance: ALBUTEROL SULFATE

REACTIONS (3)
  - Dyspnoea [None]
  - Chest pain [None]
  - Pneumonia aspiration [None]

NARRATIVE: CASE EVENT DATE: 20211011
